FAERS Safety Report 5981328-0 (Version None)
Quarter: 2008Q4

REPORT INFORMATION
  Report Type: 
  Country: None (occurrence: None)
  Receive Date: 20081205
  Receipt Date: 20080221
  Transmission Date: 20090506
  Serious: No
  Sender: FDA-Public Use
  Company Number: US-AMGEN-KDL266559

PATIENT
  Sex: Male

DRUGS (3)
  1. ENBREL [Suspect]
     Indication: RHEUMATOID ARTHRITIS
     Route: 058
     Dates: start: 20060201
  2. METHOTREXATE [Concomitant]
     Route: 048
     Dates: start: 20050802
  3. PLAQUENIL [Concomitant]
     Dates: start: 20050802

REACTIONS (4)
  - DYSGEUSIA [None]
  - FATIGUE [None]
  - PRODUCTIVE COUGH [None]
  - SINUSITIS [None]
